FAERS Safety Report 8808116 (Version 2)
Quarter: 2012Q4

REPORT INFORMATION
  Report Type: 
  Country: DE (occurrence: DE)
  Receive Date: 20120925
  Receipt Date: 20121011
  Transmission Date: 20130627
  Serious: Yes (Hospitalization, Congenital Anomaly, Other)
  Sender: FDA-Public Use
  Company Number: PHHY2012DE081433

PATIENT
  Sex: Female

DRUGS (5)
  1. INFLUENZA VIRUS VACCINE NOS [Suspect]
     Indication: IMMUNISATION
     Dosage: 1 DF
     Route: 064
  2. LAMOTRIGINE [Suspect]
     Dosage: 200 mg, BID
     Route: 064
     Dates: start: 20110719, end: 20120321
  3. FOLSAN [Concomitant]
     Dosage: 5 mg, QD
     Route: 064
  4. HUMALOG [Concomitant]
     Dosage: UNK
     Route: 064
     Dates: start: 20110709, end: 20120321
  5. NOVORAPID [Concomitant]
     Dosage: UNK
     Route: 064
     Dates: start: 20110709, end: 20120321

REACTIONS (7)
  - Gastroschisis [Recovered/Resolved with Sequelae]
  - Atrial septal defect [Unknown]
  - Haemangioma [Unknown]
  - Premature baby [Unknown]
  - Low birth weight baby [Unknown]
  - Foetal exposure during pregnancy [Unknown]
  - Exposure during pregnancy [None]
